FAERS Safety Report 7538405-2 (Version None)
Quarter: 2011Q2

REPORT INFORMATION
  Report Type: 
  Country: None (occurrence: None)
  Receive Date: 20110609
  Receipt Date: 20110525
  Transmission Date: 20111010
  Serious: Yes (Death, Other)
  Sender: FDA-Public Use
  Company Number: GB-WATSON-2011-07768

PATIENT
  Sex: Female

DRUGS (4)
  1. PHENOBARBITAL TAB [Suspect]
     Indication: EPILEPSY
     Dosage: UNK
     Route: 065
  2. VALPROATE SODIUM [Suspect]
     Indication: EPILEPSY
     Dosage: UNK
     Route: 065
  3. CARBAMAZEPINE [Suspect]
     Indication: EPILEPSY
     Dosage: UNK
     Route: 065
  4. TOPIRAMATE [Suspect]
     Indication: EPILEPSY
     Dosage: UNK
     Route: 048

REACTIONS (2)
  - STATUS EPILEPTICUS [None]
  - SUDDEN UNEXPLAINED DEATH IN EPILEPSY [None]
